FAERS Safety Report 9235660 (Version 1)
Quarter: 2013Q2

REPORT INFORMATION
  Report Type: Spontaneous
  Country: US (occurrence: None)
  Receive Date: 20130416
  Receipt Date: 20130416
  Transmission Date: 20140414
  Serious: Yes (Hospitalization)
  Sender: FDA-Public Use
  Company Number: None

PATIENT
  Age: 65 Year
  Sex: Female
  Weight: 97 kg

DRUGS (2)
  1. CARBOPLATIN [Suspect]
     Dosage: TOTAL DOSE 690 MG
  2. PACLITAXEL (TAXOL) [Suspect]
     Dosage: TOTAL  DOSE 348 MG

REACTIONS (5)
  - Pain [None]
  - Mass [None]
  - Leukopenia [None]
  - Anaemia [None]
  - Neutrophil count abnormal [None]
